FAERS Safety Report 20675394 (Version 2)
Quarter: 2022Q4

REPORT INFORMATION
  Report Type: Spontaneous
  Country: FR (occurrence: FR)
  Receive Date: 20220405
  Receipt Date: 20221208
  Transmission Date: 20230113
  Serious: Yes (Other)
  Sender: FDA-Public Use
  Company Number: FR-JAZZ-2022-FR-010743

PATIENT

DRUGS (1)
  1. XYREM [Suspect]
     Active Substance: SODIUM OXYBATE
     Indication: Hypersomnia
     Dosage: 2.25 GRAM, QD
     Route: 048
     Dates: start: 20140501

REACTIONS (2)
  - Food craving [Unknown]
  - Product use issue [Unknown]

NARRATIVE: CASE EVENT DATE: 20140501
